FAERS Safety Report 4736483-7 (Version None)
Quarter: 2005Q3

REPORT INFORMATION
  Report Type: 
  Country: None (occurrence: None)
  Receive Date: 20050802
  Receipt Date: 20050721
  Transmission Date: 20060218
  Serious: Yes (Hospitalization)
  Sender: FDA-Public Use
  Company Number: BRO-008780

PATIENT
  Age: 60 Year
  Sex: Female

DRUGS (7)
  1. IOPAMIDOL-300 [Suspect]
     Indication: COMPUTERISED TOMOGRAM
     Dosage: 90 MG IV
     Route: 042
     Dates: start: 20050623, end: 20050623
  2. AMBROXOL HYDROCHLORIDE / MUCOSOLVAN [Suspect]
     Indication: COUGH
     Dosage: 5 MG PO
     Route: 048
     Dates: start: 20050623, end: 20050623
  3. METOPROLOL TARTRATE / SELOKEN [Suspect]
     Indication: HYPERTENSION
     Dosage: 60 MG PO
     Route: 048
     Dates: start: 20050618, end: 20050623
  4. ENALAPRIL MALEATE [Concomitant]
  5. DIOVAN /01319601/, (VALSARTAN) [Concomitant]
  6. NORVASC /00972401/, (AMLODIPINE) [Concomitant]
  7. DOXAZOSIN MESYLATE [Concomitant]

REACTIONS (4)
  - BACK PAIN [None]
  - CHEST PAIN [None]
  - HYPERSENSITIVITY [None]
  - INTERSTITIAL LUNG DISEASE [None]
